FAERS Safety Report 10111200 (Version 1)
Quarter: 2014Q2

REPORT INFORMATION
  Report Type: Spontaneous
  Country: US (occurrence: US)
  Receive Date: 20140425
  Receipt Date: 20140425
  Transmission Date: 20141212
  Serious: Yes (Life-Threatening, Hospitalization)
  Sender: FDA-Public Use
  Company Number: US-JNJFOC-20140414027

PATIENT
  Age: 54 Year
  Sex: Female
  Weight: 80.29 kg

DRUGS (17)
  1. XARELTO [Suspect]
     Indication: PRODUCT USED FOR UNKNOWN INDICATION
     Route: 048
     Dates: start: 20140108, end: 20140108
  2. PHENERGAN [Concomitant]
     Route: 065
  3. SODIUM CHLORIDE [Concomitant]
     Route: 065
  4. COUMADIN [Concomitant]
     Route: 065
  5. ROXICODONE [Concomitant]
     Route: 065
  6. HEPARIN [Concomitant]
     Dosage: 25,000IN500D5W
     Route: 065
  7. PROTONIX [Concomitant]
     Dosage: 25,000IN500D5W
     Route: 065
  8. NEURONTIN [Concomitant]
     Dosage: 25,000IN500D5W
     Route: 065
  9. ZOCOR [Concomitant]
     Dosage: 25,000IN500D5W
     Route: 065
  10. AMBIEN [Concomitant]
     Dosage: 25,000IN500D5W
     Route: 065
  11. SYNTHROID [Concomitant]
     Dosage: 25,000IN500D5W
     Route: 065
  12. MICRO K [Concomitant]
     Dosage: 25,000IN500D5W
     Route: 065
  13. GLUCOPHAGE [Concomitant]
     Dosage: 25,000IN500D5W
     Route: 065
  14. ATIVAN [Concomitant]
     Dosage: 25,000IN500D5W
     Route: 065
  15. KDUR [Concomitant]
     Dosage: 25,000IN500D5W
     Route: 065
  16. HUMALOG [Concomitant]
     Dosage: 25,000IN500D5W
     Route: 065
  17. SOLU MEDROL [Concomitant]
     Dosage: 25,000IN500D5W
     Route: 065

REACTIONS (5)
  - Convulsion [Recovered/Resolved]
  - Angioedema [Recovered/Resolved]
  - Dysphagia [Recovered/Resolved]
  - Rash [Recovered/Resolved]
  - Pruritus [Recovered/Resolved]
